FAERS Safety Report 8919914 (Version 1)
Quarter: 2012Q4

REPORT INFORMATION
  Report Type: 
  Country: US (occurrence: US)
  Receive Date: 20121121
  Receipt Date: 20121121
  Transmission Date: 20130627
  Serious: No
  Sender: FDA-Public Use
  Company Number: US-009507513-1211USA005680

PATIENT
  Sex: Female

DRUGS (2)
  1. PEGINTRON [Suspect]
     Indication: HEPATITIS C
     Dosage: UNK
     Dates: start: 20121101
  2. RIBAVIRIN [Suspect]
     Indication: HEPATITIS C
     Dosage: UNK
     Route: 048
     Dates: start: 20121101

REACTIONS (7)
  - Dyspnoea [Unknown]
  - Dizziness [Unknown]
  - Respiratory tract congestion [Unknown]
  - Feeling abnormal [Unknown]
  - Sensation of heaviness [Unknown]
  - Chest pain [Unknown]
  - Fatigue [Unknown]
